FAERS Safety Report 19569932 (Version 1)
Quarter: 2021Q3

REPORT INFORMATION
  Report Type: Report from Study
  Country: US (occurrence: US)
  Receive Date: 20210716
  Receipt Date: 20210716
  Transmission Date: 20211014
  Serious: Yes (Hospitalization)
  Sender: FDA-Public Use
  Company Number: US-TAKEDA-2021TUS042428

PATIENT
  Sex: Female

DRUGS (1)
  1. 644 (ECALLANTIDE) [Suspect]
     Active Substance: ECALLANTIDE
     Indication: HEREDITARY ANGIOEDEMA
     Dosage: UNK
     Route: 065

REACTIONS (1)
  - Hereditary angioedema [Unknown]
